FAERS Safety Report 10406665 (Version 1)
Quarter: 2014Q3

REPORT INFORMATION
  Report Type: Spontaneous
  Country: US (occurrence: None)
  Receive Date: 20140822
  Receipt Date: 20140822
  Transmission Date: 20150326
  Serious: No
  Sender: FDA-Public Use
  Company Number: None

PATIENT
  Age: 67 Year
  Sex: Female

DRUGS (1)
  1. TECFIDERA [Suspect]
     Active Substance: DIMETHYL FUMARATE
     Indication: MULTIPLE SCLEROSIS
     Dosage: 120MG  AS DIRECTED  PO
     Route: 048
     Dates: start: 20140723, end: 20140805

REACTIONS (4)
  - Hypokinesia [None]
  - Malaise [None]
  - Abdominal pain upper [None]
  - Pyrexia [None]

NARRATIVE: CASE EVENT DATE: 20140805
